FAERS Safety Report 9219696 (Version 1)
Quarter: 2013Q1

REPORT INFORMATION
  Report Type: Spontaneous
  Country: US (occurrence: None)
  Receive Date: 20120830
  Receipt Date: 20120830
  Transmission Date: 20140127
  Serious: Yes (Hospitalization)
  Sender: FDA-Public Use
  Company Number: PHEH2012US011326

PATIENT
  Age: 48 Year
  Sex: Female

DRUGS (2)
  1. EXFORGE (VALSARTAN, AMLODIPINE) UNKNOWN, 160/10MG [Suspect]
  2. BABY ASPIRIN (ACETYLSALICYCLIC ACID) [Concomitant]

REACTIONS (1)
  - Blood pressure increased [None]
